FAERS Safety Report 6119478-0 (Version None)
Quarter: 2009Q1

REPORT INFORMATION
  Report Type: 
  Country: None (occurrence: None)
  Receive Date: 20090316
  Receipt Date: 20090306
  Transmission Date: 20090719
  Serious: Yes (Hospitalization)
  Sender: FDA-Public Use
  Company Number: A0773156A

PATIENT
  Age: 56 Year
  Sex: Female
  Weight: 89.1 kg

DRUGS (7)
  1. AVANDIA [Suspect]
     Indication: DIABETES MELLITUS
     Dosage: 4MG PER DAY
     Route: 048
     Dates: start: 19991210, end: 20011101
  2. SYNTHROID [Concomitant]
  3. LORAZEPAM [Concomitant]
  4. DEPAKOTE [Concomitant]
  5. CLONAZEPAM [Concomitant]
  6. TAZORAC [Concomitant]
  7. CLOBETASOL PROPIONATE [Concomitant]

REACTIONS (3)
  - CARDIAC FAILURE CONGESTIVE [None]
  - CARDIOMYOPATHY [None]
  - CORONARY ARTERY DISEASE [None]
